FAERS Safety Report 11428033 (Version 2)
Quarter: 2015Q4

REPORT INFORMATION
  Report Type: Report from Study
  Country: US (occurrence: US)
  Receive Date: 20150828
  Receipt Date: 20151012
  Transmission Date: 20160304
  Serious: No
  Sender: FDA-Public Use
  Company Number: PHHY2015US098151

PATIENT
  Age: 35 Year
  Sex: Male

DRUGS (1)
  1. GILENYA [Suspect]
     Active Substance: FINGOLIMOD HYDROCHLORIDE
     Indication: MULTIPLE SCLEROSIS
     Dosage: UNK
     Route: 065

REACTIONS (7)
  - Muscle spasms [Unknown]
  - Depressive symptom [Unknown]
  - Vertigo positional [Unknown]
  - Migraine [Unknown]
  - Cyst [Unknown]
  - Lymphocyte count decreased [Unknown]
  - Goitre [Unknown]

NARRATIVE: CASE EVENT DATE: 20150114
